FAERS Safety Report 7678024-0 (Version None)
Quarter: 2011Q3

REPORT INFORMATION
  Report Type: 
  Country: None (occurrence: None)
  Receive Date: 20110811
  Receipt Date: 20110803
  Transmission Date: 20111222
  Serious: Yes (Death)
  Sender: FDA-Public Use
  Company Number: DE-GLAXOSMITHKLINE-B0732362B

PATIENT
  Sex: Female

DRUGS (3)
  1. TOPOTECAN [Suspect]
     Indication: OVARIAN CANCER RECURRENT
     Route: 042
     Dates: start: 20110627
  2. BLINDED TRIAL MEDICATION [Suspect]
     Indication: OVARIAN CANCER RECURRENT
     Route: 048
     Dates: start: 20110702
  3. FENTANYL [Concomitant]
     Indication: PAIN
     Dosage: 25MG PER DAY
     Route: 042
     Dates: start: 20110801, end: 20110802

REACTIONS (3)
  - SUBILEUS [None]
  - VOMITING [None]
  - SEPTIC SHOCK [None]
